FAERS Safety Report 24688847 (Version 1)
Quarter: 2024Q4

REPORT INFORMATION
  Report Type: Spontaneous
  Country: RS (occurrence: RS)
  Receive Date: 20241203
  Receipt Date: 20241203
  Transmission Date: 20250115
  Serious: Yes (Other)
  Sender: BOEHRINGER INGELHEIM
  Company Number: RS-BoehringerIngelheim-2024-BI-065040

PATIENT
  Age: 43 Year
  Sex: Male

DRUGS (2)
  1. OFEV [Suspect]
     Active Substance: NINTEDANIB
     Indication: Systemic scleroderma
     Dates: start: 202211
  2. CELLCEPT [Concomitant]
     Active Substance: MYCOPHENOLATE MOFETIL
     Indication: Product used for unknown indication

REACTIONS (6)
  - Pulmonary hypertension [Unknown]
  - High-resolution computerised tomogram of lung [Unknown]
  - Walking distance test abnormal [Unknown]
  - Oxygen saturation decreased [Unknown]
  - Tricuspid valve incompetence [Unknown]
  - Forced vital capacity decreased [Unknown]

NARRATIVE: CASE EVENT DATE: 20230101
